FAERS Safety Report 13634503 (Version 1)
Quarter: 2017Q2

REPORT INFORMATION
  Report Type: Spontaneous
  Country: IT (occurrence: IT)
  Receive Date: 20170609
  Receipt Date: 20170609
  Transmission Date: 20170830
  Serious: Yes (Other)
  Sender: FDA-Public Use
  Company Number: IT-APOTEX-2017AP012729

PATIENT
  Age: 83 Year
  Sex: Female

DRUGS (6)
  1. ALENDRONATO DOC [Suspect]
     Active Substance: ALENDRONATE SODIUM
     Indication: PROPHYLAXIS
     Dosage: 70 MG, PER WEEK
     Route: 048
     Dates: start: 2010
  2. ALENDRONATO DOC [Suspect]
     Active Substance: ALENDRONATE SODIUM
     Indication: HIP SURGERY
  3. VITAMIN D                          /00107901/ [Concomitant]
     Active Substance: ERGOCALCIFEROL
     Indication: PROPHYLAXIS
     Dosage: 70 MG, UNK
     Route: 048
     Dates: start: 2002
  4. CALCIUM [Concomitant]
     Active Substance: CALCIUM
     Indication: PROPHYLAXIS
     Dosage: 600 MG, PER DAY
     Route: 048
  5. VITAMIN D                          /00107901/ [Concomitant]
     Active Substance: ERGOCALCIFEROL
     Dosage: 400 IU, PER DAY
     Route: 048
  6. ALENDRONATO DOC [Suspect]
     Active Substance: ALENDRONATE SODIUM
     Indication: OSTEOPOROSIS
     Dosage: 70 MG, EVERY WEEK
     Route: 048
     Dates: start: 2002

REACTIONS (2)
  - Acetabulum fracture [Recovered/Resolved with Sequelae]
  - Periprosthetic fracture [Recovered/Resolved with Sequelae]
